FAERS Safety Report 21087981 (Version 1)
Quarter: 2022Q3

REPORT INFORMATION
  Report Type: Spontaneous
  Country: US (occurrence: None)
  Receive Date: 20220714
  Receipt Date: 20220714
  Transmission Date: 20221027
  Serious: No
  Sender: FDA-Public Use
  Company Number: None

PATIENT
  Sex: Female

DRUGS (1)
  1. ZEJULA [Suspect]
     Active Substance: NIRAPARIB
     Indication: Ovarian cancer
     Dosage: 300MG ONCE DAILY ORAL?
     Route: 048
     Dates: start: 202206, end: 20220614

REACTIONS (2)
  - Drug ineffective [None]
  - Therapy cessation [None]
